FAERS Safety Report 5943548-0 (Version None)
Quarter: 2008Q4

REPORT INFORMATION
  Report Type: 
  Country: None (occurrence: None)
  Receive Date: 20081106
  Receipt Date: 20081028
  Transmission Date: 20090506
  Serious: Yes (Death, Hospitalization)
  Sender: FDA-Public Use
  Company Number: HQ8117407NOV2001

PATIENT
  Age: 82 Year
  Sex: Female

DRUGS (2)
  1. IBUPROFEN [Suspect]
     Indication: INFLUENZA
     Route: 048
  2. IBUPROFEN [Suspect]
     Indication: PAIN

REACTIONS (4)
  - ANAEMIA [None]
  - DUODENITIS HAEMORRHAGIC [None]
  - GASTRITIS [None]
  - SHOCK [None]
